FAERS Safety Report 4689688-8 (Version None)
Quarter: 2005Q2

REPORT INFORMATION
  Report Type: 
  Country: None (occurrence: None)
  Receive Date: 20050614
  Receipt Date: 20050602
  Transmission Date: 20051028
  Serious: Yes (Life-Threatening, Hospitalization, Disabling)
  Sender: FDA-Public Use
  Company Number: US-JNJFOC-20050502306

PATIENT
  Sex: Male
  Weight: 76.66 kg

DRUGS (6)
  1. REMICADE [Suspect]
     Dosage: 4 DOSES
     Route: 042
  2. METHYLPREDNISOLONE [Concomitant]
  3. HYDROXYCHLOROQUINE SULFATE [Concomitant]
  4. TYLENOL (CAPLET) [Concomitant]
  5. NEXIUM [Concomitant]
  6. AZATHIOPRINE [Concomitant]

REACTIONS (5)
  - CHEST X-RAY ABNORMAL [None]
  - HEPATIC FAILURE [None]
  - HISTOPLASMOSIS [None]
  - HISTOPLASMOSIS DISSEMINATED [None]
  - RASH MACULO-PAPULAR [None]
